FAERS Safety Report 10278433 (Version 1)
Quarter: 2014Q3

REPORT INFORMATION
  Report Type: Report from Study
  Country: US (occurrence: US)
  Receive Date: 20140704
  Receipt Date: 20140704
  Transmission Date: 20150326
  Serious: Yes (Other)
  Sender: FDA-Public Use
  Company Number: US-ABBVIE-14P-163-1254244-00

PATIENT
  Age: 45 Year
  Sex: Male

DRUGS (12)
  1. HYDROCODONE [Suspect]
     Active Substance: HYDROCODONE
     Indication: PAIN
     Dates: start: 2014
  2. DESMOPRESSIN [Concomitant]
     Active Substance: DESMOPRESSIN
     Indication: PITUITARY TUMOUR REMOVAL
     Dosage: 1 SPRAY DAILY
  3. HUMIRA [Suspect]
     Active Substance: ADALIMUMAB
     Indication: PSORIATIC ARTHROPATHY
  4. ANTIBIOTICS [Suspect]
     Active Substance: UNSPECIFIED INGREDIENT
     Indication: PHARYNGEAL OEDEMA
  5. HYDROCORTISONE. [Concomitant]
     Active Substance: HYDROCORTISONE
     Indication: PITUITARY TUMOUR REMOVAL
  6. HUMIRA [Suspect]
     Active Substance: ADALIMUMAB
     Dates: end: 2014
  7. ANTIBIOTICS [Suspect]
     Active Substance: UNSPECIFIED INGREDIENT
     Indication: PHARYNGITIS STREPTOCOCCAL
     Dates: start: 2014, end: 2014
  8. ANTIBIOTICS [Suspect]
     Active Substance: UNSPECIFIED INGREDIENT
     Indication: OROPHARYNGEAL PAIN
  9. HUMIRA [Suspect]
     Active Substance: ADALIMUMAB
     Dates: end: 2012
  10. LEVOTHYROXINE [Concomitant]
     Active Substance: LEVOTHYROXINE
     Indication: PITUITARY TUMOUR REMOVAL
  11. HUMIRA [Suspect]
     Active Substance: ADALIMUMAB
     Dates: start: 20140525, end: 20140613
  12. TESTOSTERONE. [Concomitant]
     Active Substance: TESTOSTERONE
     Indication: PITUITARY TUMOUR REMOVAL
     Dosage: 1/2 TO 1 CC EVERY 2 WEEKS

REACTIONS (18)
  - Joint swelling [Recovered/Resolved]
  - Joint swelling [Recovered/Resolved]
  - Pharyngitis streptococcal [Unknown]
  - Pharyngitis streptococcal [Recovered/Resolved]
  - Psoriasis [Recovered/Resolved]
  - Bursitis [Recovered/Resolved]
  - Joint swelling [Recovering/Resolving]
  - Arthralgia [Recovered/Resolved]
  - Pituitary tumour benign [Unknown]
  - Peripheral swelling [Recovering/Resolving]
  - Arthralgia [Recovered/Resolved]
  - Arthralgia [Recovering/Resolving]
  - Pruritus [Unknown]
  - Pain in extremity [Recovered/Resolved]
  - Streptococcal infection [Unknown]
  - Decreased immune responsiveness [Unknown]
  - Peripheral swelling [Recovered/Resolved]
  - Pain in extremity [Recovering/Resolving]

NARRATIVE: CASE EVENT DATE: 2006
